FAERS Safety Report 6017665-3 (Version None)
Quarter: 2008Q4

REPORT INFORMATION
  Report Type: 
  Country: None (occurrence: None)
  Receive Date: 20081223
  Receipt Date: 20081211
  Transmission Date: 20090506
  Serious: Yes (Death)
  Sender: FDA-Public Use
  Company Number: JP-ROCHE-594222

PATIENT
  Sex: Male

DRUGS (10)
  1. MYCOPHENOLATE MOFETIL [Suspect]
     Indication: PROPHYLAXIS AGAINST TRANSPLANT REJECTION
     Route: 048
     Dates: start: 20061008, end: 20061114
  2. PROGRAF [Suspect]
     Indication: PROPHYLAXIS AGAINST TRANSPLANT REJECTION
     Route: 041
     Dates: start: 20061008, end: 20061013
  3. PROGRAF [Suspect]
     Dosage: FORM: ORAL (NOT OTHERWISE SPECIFIED)
     Route: 048
     Dates: start: 20061012, end: 20061114
  4. PREDONINE [Suspect]
     Indication: PROPHYLAXIS AGAINST TRANSPLANT REJECTION
     Route: 048
     Dates: start: 20061012, end: 20061114
  5. RABEPRAZOLE SODIUM [Concomitant]
     Route: 048
     Dates: start: 20061008, end: 20061017
  6. VANCOMYCIN [Concomitant]
     Route: 041
     Dates: start: 20061008, end: 20061019
  7. FUNGUARD [Concomitant]
     Route: 041
     Dates: start: 20061008, end: 20061117
  8. FOY [Concomitant]
     Route: 042
     Dates: start: 20061011, end: 20061019
  9. VFEND [Concomitant]
     Route: 048
     Dates: start: 20061018, end: 20061114
  10. GASTROZEPIN [Concomitant]
     Dosage: FORM: NOT OTHERWISE SPECIFIED
     Route: 048
     Dates: start: 20061018, end: 20061114

REACTIONS (2)
  - CYTOMEGALOVIRUS INFECTION [None]
  - HEPATIC FAILURE [None]
